FAERS Safety Report 8188613-5 (Version None)
Quarter: 2012Q1

REPORT INFORMATION
  Report Type: 
  Country: None (occurrence: None)
  Receive Date: 20120306
  Receipt Date: 20120301
  Transmission Date: 20120608
  Serious: Yes (Hospitalization)
  Sender: FDA-Public Use
  Company Number: US-PFIZER INC-2012056798

PATIENT
  Sex: Female
  Weight: 72.562 kg

DRUGS (5)
  1. DILANTIN [Suspect]
     Dosage: 200 MG, 2X/DAY (TWO CAPSULES OF 100MG TWO TIMES A DAY)
     Route: 048
  2. ASCORBIC ACID [Concomitant]
     Dosage: UNK
  3. DILANTIN [Suspect]
     Indication: GRAND MAL CONVULSION
     Dosage: 100 MG, DAILY
     Route: 048
  4. PRILOSEC [Concomitant]
     Indication: GASTROOESOPHAGEAL REFLUX DISEASE
     Dosage: UNK, DAILY
  5. DETROL [Concomitant]
     Indication: CYSTITIS INTERSTITIAL
     Dosage: 10 MG,DAILY

REACTIONS (2)
  - ANAEMIA [None]
  - POOR QUALITY DRUG ADMINISTERED [None]
